FAERS Safety Report 8272263-6 (Version None)
Quarter: 2012Q2

REPORT INFORMATION
  Report Type: 
  Country: None (occurrence: None)
  Receive Date: 20120410
  Receipt Date: 20120113
  Transmission Date: 20120825
  Serious: No
  Sender: FDA-Public Use
  Company Number: US-TEVA-2011005219

PATIENT
  Sex: Female
  Weight: 47.67 kg

DRUGS (7)
  1. ZOLPIDEM TARTRATE [Concomitant]
     Indication: INSOMNIA
  2. DIAZEPAM [Concomitant]
  3. NUVIGIL [Suspect]
     Indication: CIRCADIAN RHYTHM SLEEP DISORDER
     Route: 048
     Dates: start: 20110101, end: 20110201
  4. MEDROXYPROGESTERONE [Concomitant]
  5. LORAZEPAM [Concomitant]
  6. SUMATRIPTAN [Concomitant]
  7. GABAPENTIN [Concomitant]
     Indication: NEURALGIA

REACTIONS (1)
  - FACIAL SPASM [None]
